FAERS Safety Report 20816006 (Version 1)
Quarter: 2022Q2

REPORT INFORMATION
  Report Type: Spontaneous
  Country: US (occurrence: US)
  Receive Date: 20220511
  Receipt Date: 20220511
  Transmission Date: 20220721
  Serious: No
  Sender: FDA-Public Use
  Company Number: US-CLARUS THERAPEUTICS, INC.-2022-JATENZO-000055

PATIENT

DRUGS (3)
  1. JATENZO [Suspect]
     Active Substance: TESTOSTERONE UNDECANOATE
     Indication: Primary hypogonadism
     Dosage: UNK, BID
     Route: 048
     Dates: start: 202202
  2. JATENZO [Suspect]
     Active Substance: TESTOSTERONE UNDECANOATE
     Dosage: 237 UNK, BID
     Route: 048
  3. JATENZO [Suspect]
     Active Substance: TESTOSTERONE UNDECANOATE
     Dosage: UNK
     Route: 048

REACTIONS (1)
  - Blood testosterone increased [Unknown]

NARRATIVE: CASE EVENT DATE: 20220101
